FAERS Safety Report 7109299-4 (Version None)
Quarter: 2010Q4

REPORT INFORMATION
  Report Type: 
  Country: None (occurrence: None)
  Receive Date: 20101117
  Receipt Date: 20101104
  Transmission Date: 20110411
  Serious: Yes (Hospitalization)
  Sender: FDA-Public Use
  Company Number: JP-MYLANLABS-2010S1020640

PATIENT
  Age: 54 Year
  Sex: Male

DRUGS (1)
  1. MINOCYCLINE HCL [Suspect]
     Indication: PRURITUS
     Route: 065
     Dates: start: 20070825

REACTIONS (2)
  - GASTROENTERITIS EOSINOPHILIC [None]
  - GASTROINTESTINAL MUCOSAL DISORDER [None]
